FAERS Safety Report 5711529-8 (Version None)
Quarter: 2008Q2

REPORT INFORMATION
  Report Type: 
  Country: None (occurrence: None)
  Receive Date: 20080415
  Receipt Date: 20080331
  Transmission Date: 20081010
  Serious: Yes (Hospitalization)
  Sender: FDA-Public Use
  Company Number: 100#08#2008-01732

PATIENT
  Age: 78 Year
  Sex: Male

DRUGS (3)
  1. FLUTAMIDE [Suspect]
     Indication: PROSTATE CANCER
     Dosage: 750 MG ORAL
     Route: 048
     Dates: start: 20030601, end: 20030901
  2. CYPROTERONE (CYPROTERONE) [Suspect]
     Indication: PROSTATE CANCER
     Dosage: 150 MG
     Dates: start: 20040101, end: 20040301
  3. LEUPROLERIDE ACETATE (LEUPROLERIDE ACETATE) [Concomitant]

REACTIONS (3)
  - CROSS SENSITIVITY REACTION [None]
  - HEPATIC FAILURE [None]
  - HEPATITIS ACUTE [None]
